FAERS Safety Report 6518007-7 (Version None)
Quarter: 2009Q4

REPORT INFORMATION
  Report Type: 
  Country: None (occurrence: None)
  Receive Date: 20091224
  Receipt Date: 20091218
  Transmission Date: 20100525
  Serious: Yes (Hospitalization)
  Sender: FDA-Public Use
  Company Number: US-BRISTOL-MYERS SQUIBB COMPANY-14880033

PATIENT
  Age: 50 Year
  Sex: Female
  Weight: 113 kg

DRUGS (26)
  1. ORENCIA [Suspect]
     Indication: RHEUMATOID ARTHRITIS
     Dosage: LAST DOSE:29SEP09 ALSO TAKEN AS CONMED 500MG IVB ON 03NOV09
     Route: 042
     Dates: start: 20090609
  2. ATENOLOL [Concomitant]
     Route: 048
     Dates: start: 20091103
  3. AVINZA [Concomitant]
     Route: 048
     Dates: start: 20091103
  4. LASIX [Concomitant]
     Route: 048
     Dates: start: 20091103
  5. LEVOXYL [Concomitant]
  6. POTASSIUM CHLORIDE [Concomitant]
     Route: 048
     Dates: start: 20091103
  7. FOLIC ACID [Concomitant]
     Route: 048
     Dates: start: 20091103
  8. METHOTREXATE [Concomitant]
     Dosage: TAKEN ON 3NOV2009
     Route: 058
     Dates: start: 20090928
  9. OSCAL D [Concomitant]
     Dosage: 1 DF-1 TAB
     Route: 048
     Dates: start: 20091103
  10. EFFEXOR XR [Concomitant]
     Route: 047
     Dates: start: 20091103
  11. MEVACOR [Concomitant]
     Route: 048
     Dates: start: 20091103
  12. DOXEPIN HCL [Concomitant]
     Route: 048
     Dates: start: 20091103
  13. PROAIR HFA [Concomitant]
     Dosage: INHALER 2DF=2PUFFS EVERY 6HRS
     Route: 055
     Dates: start: 20091103
  14. SYMBICORT [Concomitant]
     Dosage: INHALER
     Route: 055
  15. LORAZEPAM [Concomitant]
  16. OXYCODONE [Concomitant]
  17. TYLENOL [Concomitant]
  18. SYNTHROID [Concomitant]
     Route: 048
     Dates: start: 20091103
  19. PRILOSEC [Concomitant]
     Route: 048
     Dates: start: 20091103
  20. KLOR-CON [Concomitant]
  21. CALCIUM [Concomitant]
  22. VITAMIN D [Concomitant]
  23. LOVASTATIN [Concomitant]
  24. VENTOLIN DS [Concomitant]
  25. MULTI-VITAMIN [Concomitant]
  26. FLU VACCINE [Concomitant]
     Dosage: SEASONAL FLU VACCINE.
     Dates: start: 20090928

REACTIONS (8)
  - ABDOMINAL PAIN [None]
  - ASTHMA [None]
  - COUGH [None]
  - DIARRHOEA [None]
  - NAUSEA [None]
  - URINARY TRACT INFECTION [None]
  - VOMITING [None]
  - WHITE BLOOD CELL COUNT INCREASED [None]
